FAERS Safety Report 8841700 (Version 4)
Quarter: 2013Q3

REPORT INFORMATION
  Report Type: Spontaneous
  Country: US (occurrence: None)
  Receive Date: 20121011
  Receipt Date: 20130702
  Transmission Date: 20140515
  Serious: Yes (Hospitalization, Other)
  Sender: FDA-Public Use
  Company Number: 2012-000972

PATIENT
  Age: 56 Year
  Sex: Female

DRUGS (9)
  1. ACTONEL [Suspect]
     Indication: OSTEOPENIA
     Route: 048
     Dates: start: 2002, end: 20050417
  2. FOSAMAX (ALENDRONATE SODIUM) [Suspect]
     Indication: OSTEOPENIA
     Route: 048
     Dates: start: 20050417, end: 201006
  3. ALENDRONATE [Suspect]
     Indication: OSTEOPENIA
     Dosage: 70 MG, 1/WEEK, ORAL
     Route: 048
     Dates: start: 200808, end: 201006
  4. CRESTOR (ROSUVASTIN CALCIUM) [Concomitant]
  5. COZAAR (LOSARTAN POTASSIUM) [Concomitant]
  6. HYZAAR (HYDROCHLOROTHIAZIDE, LOSARTAN POTASSIUM) [Concomitant]
  7. LIPITOR (ATORVASTATIN CALCIUM) [Concomitant]
  8. CALCIUM (CALCIUM) [Concomitant]
  9. VITAMIN D /00318501/ (COLECALCIFEROL) [Concomitant]

REACTIONS (11)
  - Femur fracture [None]
  - Pathological fracture [None]
  - Fracture displacement [None]
  - Fall [None]
  - Stress fracture [None]
  - Bone disorder [None]
  - Low turnover osteopathy [None]
  - Pain [None]
  - Multiple injuries [None]
  - Periostitis [None]
  - Periostitis [None]
